FAERS Safety Report 5912054-1 (Version None)
Quarter: 2008Q4

REPORT INFORMATION
  Report Type: 
  Country: None (occurrence: None)
  Receive Date: 20081003
  Receipt Date: 20081003
  Transmission Date: 20090506
  Serious: Yes (Other)
  Sender: FDA-Public Use
  Company Number: None

PATIENT
  Age: 57 Year
  Sex: Female
  Weight: 65.7716 kg

DRUGS (2)
  1. LEVAQUIN [Suspect]
     Indication: BRONCHITIS
     Dosage: 1 TABLET DAILY FOR 5 DAYS PO
     Route: 048
     Dates: start: 20080922, end: 20080926
  2. LEVAQUIN [Suspect]
     Indication: COUGH
     Dosage: 1 TABLET DAILY FOR 5 DAYS PO
     Route: 048
     Dates: start: 20080922, end: 20080926

REACTIONS (1)
  - RASH GENERALISED [None]
